FAERS Safety Report 23787345 (Version 1)
Quarter: 2024Q2

REPORT INFORMATION
  Report Type: Spontaneous
  Country: GB (occurrence: GB)
  Receive Date: 20240426
  Receipt Date: 20240426
  Transmission Date: 20240716
  Serious: Yes (Other)
  Sender: FDA-Public Use
  Company Number: None

PATIENT
  Age: 66 Year
  Sex: Male
  Weight: 78 kg

DRUGS (7)
  1. ATORVASTATIN [Suspect]
     Active Substance: ATORVASTATIN
     Indication: Product used for unknown indication
     Dates: start: 20230906
  2. ADCAL [Concomitant]
     Dates: start: 20230906
  3. ASPIRIN [Concomitant]
     Active Substance: ASPIRIN
     Dosage: EACH MORNING
     Dates: start: 20230906
  4. LANSOPRAZOLE [Concomitant]
     Active Substance: LANSOPRAZOLE
     Dates: start: 20230906
  5. RAMIPRIL [Concomitant]
     Active Substance: RAMIPRIL
     Dates: start: 20230906
  6. SERTRALINE [Concomitant]
     Active Substance: SERTRALINE HYDROCHLORIDE
     Dates: start: 20230906
  7. ZEMTARD MR [Concomitant]
     Dates: start: 20230906

REACTIONS (3)
  - Paraesthesia [Recovering/Resolving]
  - Skin exfoliation [Recovering/Resolving]
  - Skin fissures [Recovering/Resolving]
